FAERS Safety Report 10219520 (Version 1)
Quarter: 2014Q1

REPORT INFORMATION
  Report Type: Spontaneous
  Country: US (occurrence: None)
  Receive Date: 20140306
  Receipt Date: 20140306
  Transmission Date: 20141002
  Serious: Yes (Other)
  Sender: FDA-Public Use
  Company Number: 163-21880-13100646

PATIENT
  Age: 60 Year
  Sex: Female

DRUGS (1)
  1. REVLIMID (LENALIDOMIDE) (CAPSULES) [Suspect]
     Indication: LYMPHOMA
     Dosage: 28 IN 28 D
     Route: 048
     Dates: start: 201308, end: 20130905

REACTIONS (3)
  - Diarrhoea [None]
  - Abdominal pain [None]
  - Muscle spasms [None]
